FAERS Safety Report 10804366 (Version 1)
Quarter: 2015Q1

REPORT INFORMATION
  Report Type: Report from Study
  Country: US (occurrence: US)
  Receive Date: 20150217
  Receipt Date: 20150217
  Transmission Date: 20150721
  Serious: No
  Sender: FDA-Public Use
  Company Number: US-ABBVIE-14K-163-1245456-00

PATIENT
  Age: 62 Year
  Sex: Female

DRUGS (24)
  1. OMEPRAZOLE. [Concomitant]
     Active Substance: OMEPRAZOLE
     Indication: DYSPEPSIA
  2. PROBIOTIC [Concomitant]
     Active Substance: PROBIOTICS NOS
     Indication: PRODUCT USED FOR UNKNOWN INDICATION
  3. WELCHOL [Concomitant]
     Active Substance: COLESEVELAM HYDROCHLORIDE
     Indication: PRODUCT USED FOR UNKNOWN INDICATION
     Dosage: ONE AT BREAKFAST ONE AT DINNER
  4. GAS-X [Concomitant]
     Active Substance: DIMETHICONE
     Indication: PRODUCT USED FOR UNKNOWN INDICATION
     Dosage: 1 TAB EVERY MORNING AND DURING THE DAY AS NEEDED
  5. TRONOLANE [Concomitant]
     Indication: HAEMORRHOIDS
     Route: 061
  6. HUMIRA [Suspect]
     Active Substance: ADALIMUMAB
     Indication: COLITIS ULCERATIVE
     Dates: start: 20140531, end: 20140531
  7. PREDNISONE. [Concomitant]
     Active Substance: PREDNISONE
     Indication: COLITIS ULCERATIVE
  8. SYNTHROID [Concomitant]
     Active Substance: LEVOTHYROXINE SODIUM
     Indication: AUTOIMMUNE THYROIDITIS
  9. LOMOTIL [Concomitant]
     Active Substance: ATROPINE SULFATE\DIPHENOXYLATE HYDROCHLORIDE
     Indication: DIARRHOEA
     Dosage: TWO IN ONE DAY
  10. ALLEGRA [Concomitant]
     Active Substance: FEXOFENADINE HYDROCHLORIDE
     Indication: HYPERSENSITIVITY
  11. TRONOLANE [Concomitant]
     Indication: COLITIS ULCERATIVE
  12. VITAMIN D [Concomitant]
     Active Substance: CHOLECALCIFEROL
     Indication: VITAMIN D DECREASED
     Dosage: ON MONDAY
  13. ESTRADIOL. [Concomitant]
     Active Substance: ESTRADIOL
     Indication: HORMONE REPLACEMENT THERAPY
  14. CALCITROL [Concomitant]
     Active Substance: CALCITRIOL
     Indication: DIARRHOEA
  15. TRAMADOL [Concomitant]
     Active Substance: TRAMADOL
     Indication: BREAKTHROUGH PAIN
  16. AMP FLORACEL [Concomitant]
     Indication: NUTRITIONAL SUPPLEMENTATION
     Dosage: FOUR TO SIX CAPSULES IN MORNING
  17. XYLOCAINE [Concomitant]
     Active Substance: LIDOCAINE HYDROCHLORIDE
     Indication: PAIN
     Route: 061
  18. TRONOLANE [Concomitant]
     Indication: INFLAMMATION
  19. EEMT [Concomitant]
     Active Substance: ESTROGENS, ESTERIFIED\METHYLTESTOSTERONE
     Indication: HORMONE REPLACEMENT THERAPY
     Dosage: AT BED TIME 0.625/1.25 MG
  20. CALCITROL [Concomitant]
     Active Substance: CALCITRIOL
     Indication: NUTRITIONAL SUPPLEMENTATION
  21. HUMIRA [Suspect]
     Active Substance: ADALIMUMAB
     Dates: start: 201406
  22. BENTYL [Concomitant]
     Active Substance: DICYCLOMINE HYDROCHLORIDE
     Indication: MUSCLE SPASMS
     Dosage: 2 TABS IN THE MORNING AND THEN 1 TAB UP TO FIVE TIMES DAILY AS NEEDED
  23. TRAMADOL [Concomitant]
     Active Substance: TRAMADOL
     Dosage: ONCE DAILY
  24. XYLOCAINE [Concomitant]
     Active Substance: LIDOCAINE HYDROCHLORIDE
     Indication: INFLAMMATION

REACTIONS (2)
  - Injection site pain [Recovered/Resolved]
  - Drug ineffective [Not Recovered/Not Resolved]

NARRATIVE: CASE EVENT DATE: 2014
